FAERS Safety Report 10184098 (Version 1)
Quarter: 2014Q2

REPORT INFORMATION
  Report Type: Spontaneous
  Country: US (occurrence: US)
  Receive Date: 20140520
  Receipt Date: 20140520
  Transmission Date: 20141212
  Serious: No
  Sender: FDA-Public Use
  Company Number: US-ASTRAZENECA-2014SE10632

PATIENT
  Age: 86 Year
  Sex: Female
  Weight: 54.4 kg

DRUGS (3)
  1. ENTOCORT EC [Suspect]
     Indication: COLITIS MICROSCOPIC
     Route: 048
     Dates: start: 201312, end: 201401
  2. CHOLESTYRAMINE [Concomitant]
     Indication: COLITIS
     Dosage: UNKNOWN PRN
     Route: 048
     Dates: start: 2004
  3. GLUTAMINE [Concomitant]
     Indication: COLITIS
     Dosage: UNKNOWN PRN
     Route: 048
     Dates: start: 2004

REACTIONS (4)
  - Anxiety [Recovered/Resolved]
  - Insomnia [Recovered/Resolved]
  - Agitation [Recovered/Resolved]
  - Off label use [Recovered/Resolved]
